FAERS Safety Report 22133389 (Version 2)
Quarter: 2023Q2

REPORT INFORMATION
  Report Type: Report from Study
  Country: GB (occurrence: GB)
  Receive Date: 20230324
  Receipt Date: 20230406
  Transmission Date: 20230721
  Serious: Yes (Hospitalization)
  Sender: FDA-Public Use
  Company Number: GB-ABBVIE-4699379

PATIENT
  Age: 38 Year
  Sex: Female

DRUGS (19)
  1. SKYRIZI [Suspect]
     Active Substance: RISANKIZUMAB-RZAA
     Indication: Psoriasis
     Route: 058
     Dates: start: 20221114
  2. CLOBEX [Concomitant]
     Active Substance: CLOBETASOL PROPIONATE
     Indication: Product used for unknown indication
     Dates: start: 20210421, end: 20220905
  3. SODIUM PHOSPHATE, MONOBASIC, ANHYDROUS [Concomitant]
     Active Substance: SODIUM PHOSPHATE, MONOBASIC, ANHYDROUS
     Indication: Product used for unknown indication
     Dates: start: 20230201, end: 20230206
  4. TINZAPARIN [Concomitant]
     Active Substance: TINZAPARIN
     Indication: Product used for unknown indication
     Dates: start: 20230130, end: 20230205
  5. ENSTILAR [Concomitant]
     Active Substance: BETAMETHASONE DIPROPIONATE\CALCIPOTRIENE HYDRATE
     Indication: Product used for unknown indication
     Dates: start: 20210301, end: 20220117
  6. LEVOTHYROXINE SODIUM [Concomitant]
     Active Substance: LEVOTHYROXINE SODIUM
     Indication: Product used for unknown indication
     Dates: start: 20210622
  7. AMOXICILLIN\CLAVULANIC ACID [Concomitant]
     Active Substance: AMOXICILLIN\CLAVULANIC ACID
     Indication: Product used for unknown indication
     Dates: start: 20230129, end: 20230206
  8. FOLIC ACID [Concomitant]
     Active Substance: FOLIC ACID
     Indication: Product used for unknown indication
     Dates: start: 20180731, end: 20220905
  9. HYOSCINE BUTYLBROMIDE SXP [Concomitant]
     Indication: Product used for unknown indication
     Dates: start: 20230203
  10. CLOBETASOL PROPIONATE [Concomitant]
     Active Substance: CLOBETASOL PROPIONATE
     Indication: Product used for unknown indication
     Dates: start: 20210421, end: 20220905
  11. ONDANSETRON [Concomitant]
     Active Substance: ONDANSETRON
     Indication: Product used for unknown indication
     Dates: start: 20230130, end: 20230130
  12. POTASSIUM CHLORIDE [Concomitant]
     Active Substance: POTASSIUM CHLORIDE
     Indication: Product used for unknown indication
     Dates: start: 20230130, end: 20230203
  13. CALCIUM CARBONATE\CHOLECALCIFEROL [Concomitant]
     Active Substance: CALCIUM CARBONATE\CHOLECALCIFEROL
     Indication: Product used for unknown indication
     Dates: start: 20210318
  14. ACETAMINOPHEN [Concomitant]
     Active Substance: ACETAMINOPHEN
     Indication: Product used for unknown indication
     Dates: start: 20230129, end: 20230130
  15. SODIUM CHLORIDE [Concomitant]
     Active Substance: SODIUM CHLORIDE
     Indication: Product used for unknown indication
     Dates: start: 20230129, end: 20230130
  16. POTASSIUM BICARBONATE\POTASSIUM CHLORIDE [Concomitant]
     Active Substance: POTASSIUM BICARBONATE\POTASSIUM CHLORIDE
     Indication: Product used for unknown indication
     Dates: start: 20230206, end: 20230209
  17. MORPHINE SULFATE [Concomitant]
     Active Substance: MORPHINE SULFATE
     Indication: Product used for unknown indication
     Dates: start: 20230202, end: 20230204
  18. MAGNESIUM [Concomitant]
     Active Substance: MAGNESIUM
     Indication: Product used for unknown indication
     Dates: start: 20230203
  19. CLARITHROMYCIN [Concomitant]
     Active Substance: CLARITHROMYCIN
     Indication: Product used for unknown indication
     Dates: start: 20230204, end: 20230209

REACTIONS (2)
  - Gastroenteritis [Recovered/Resolved]
  - Pneumonia [Recovered/Resolved]

NARRATIVE: CASE EVENT DATE: 20230128
